FAERS Safety Report 24147168 (Version 1)
Quarter: 2024Q3

REPORT INFORMATION
  Report Type: Spontaneous
  Country: CN (occurrence: CN)
  Receive Date: 20240729
  Receipt Date: 20240729
  Transmission Date: 20241017
  Serious: Yes (Other)
  Sender: NOVARTIS
  Company Number: CN-002147023-NVSC2024CN153700

PATIENT
  Sex: Female

DRUGS (1)
  1. COSENTYX [Suspect]
     Active Substance: SECUKINUMAB
     Indication: Psoriasis
     Dosage: UNK, QMO
     Route: 058
     Dates: start: 20230630, end: 20240712

REACTIONS (2)
  - Tuberculosis [Unknown]
  - Interferon gamma level increased [Unknown]

NARRATIVE: CASE EVENT DATE: 20240712
